FAERS Safety Report 8826341 (Version 1)
Quarter: 2012Q4

REPORT INFORMATION
  Report Type: Report from Study
  Country: US (occurrence: US)
  Receive Date: 20121005
  Receipt Date: 20121005
  Transmission Date: 20130627
  Serious: Yes (Hospitalization, Other)
  Sender: FDA-Public Use
  Company Number: US-ABBOTT-12P-163-0988733-00

PATIENT
  Sex: Male
  Weight: 57.66 kg

DRUGS (1)
  1. CREON [Suspect]
     Dosage: 3X3 with meals, 2 with snacks
     Dates: start: 2011

REACTIONS (4)
  - Pancreatic disorder [Recovered/Resolved]
  - Pain [Recovered/Resolved]
  - Vomiting [Recovered/Resolved]
  - Pancreatitis [Unknown]
